FAERS Safety Report 4714257-0 (Version None)
Quarter: 2005Q2

REPORT INFORMATION
  Report Type: 
  Country: None (occurrence: None)
  Receive Date: 20050630
  Receipt Date: 20040817
  Transmission Date: 20051028
  Serious: Yes (Disabling)
  Sender: FDA-Public Use
  Company Number: 378082

PATIENT
  Age: 36 Year
  Sex: Male
  Weight: 64.4 kg

DRUGS (1)
  1. KLONOPIN [Suspect]
     Indication: ANXIETY
     Dosage: 1 MG DAILY ORAL
     Route: 048
     Dates: start: 19940615

REACTIONS (16)
  - ABDOMINAL DISCOMFORT [None]
  - ABDOMINAL DISTENSION [None]
  - ABDOMINAL PAIN [None]
  - AGITATION [None]
  - ASTHENIA [None]
  - BACK PAIN [None]
  - DRUG WITHDRAWAL SYNDROME [None]
  - GASTROINTESTINAL DISORDER [None]
  - HYPERACUSIS [None]
  - HYPOAESTHESIA [None]
  - MUSCLE SPASMS [None]
  - NAUSEA [None]
  - NERVOUSNESS [None]
  - SWEAT GLAND DISORDER [None]
  - VERTIGO [None]
  - VISUAL DISTURBANCE [None]
